FAERS Safety Report 22014276 (Version 2)
Quarter: 2023Q1

REPORT INFORMATION
  Report Type: Report from Study
  Country: US (occurrence: US)
  Receive Date: 20230221
  Receipt Date: 20230224
  Transmission Date: 20230418
  Serious: No
  Sender: FDA-Public Use
  Company Number: US-002147023-NVSC2023US038943

PATIENT
  Sex: Male

DRUGS (1)
  1. ENTRESTO [Suspect]
     Active Substance: SACUBITRIL\VALSARTAN
     Indication: Product used for unknown indication
     Dosage: 1 DOSAGE FORM, (97 MG)
     Route: 048
     Dates: start: 20230216

REACTIONS (3)
  - Arthralgia [Unknown]
  - Depressed mood [Unknown]
  - Underdose [Unknown]

NARRATIVE: CASE EVENT DATE: 20230201
